FAERS Safety Report 5464622-1 (Version None)
Quarter: 2007Q3

REPORT INFORMATION
  Report Type: 
  Country: None (occurrence: None)
  Receive Date: 20070921
  Receipt Date: 20070913
  Transmission Date: 20080115
  Serious: Yes (Hospitalization)
  Sender: FDA-Public Use
  Company Number: US-ABBOTT-07P-163-0417157-00

PATIENT
  Sex: Female
  Weight: 84.444 kg

DRUGS (14)
  1. HUMIRA [Suspect]
     Indication: PSORIATIC ARTHROPATHY
     Dosage: SYRINGE
     Route: 058
     Dates: start: 20050801, end: 20060801
  2. HUMIRA [Suspect]
     Dosage: PEN
     Route: 058
     Dates: start: 20070901
  3. METHOTREXATE [Suspect]
     Indication: PSORIATIC ARTHROPATHY
  4. INSULIN ASPART [Concomitant]
     Indication: TYPE 2 DIABETES MELLITUS
     Route: 058
  5. INSULIN GLARGINE [Concomitant]
     Indication: TYPE 2 DIABETES MELLITUS
     Route: 058
  6. BACTRIM [Concomitant]
     Indication: ANTI-INFECTIVE THERAPY
     Dosage: 400/800 MG
     Route: 048
  7. PREGABALIN [Concomitant]
     Indication: NEURALGIA
     Route: 048
  8. ESOMEPRAZOLE MAGNESIUM [Concomitant]
     Indication: DRUG USE FOR UNKNOWN INDICATION
     Route: 048
  9. MAGNESIUM OXIDE [Concomitant]
     Indication: DRUG USE FOR UNKNOWN INDICATION
     Route: 048
  10. OSCAL [Concomitant]
     Indication: DRUG USE FOR UNKNOWN INDICATION
     Route: 048
  11. M.V.I. [Concomitant]
     Indication: DRUG USE FOR UNKNOWN INDICATION
     Route: 048
  12. PENCICLOVIR [Concomitant]
     Indication: ORAL HERPES
     Dosage: 500 MG TO 1000 MG
     Route: 048
  13. OXYCODONE HCL [Concomitant]
     Indication: DRUG USE FOR UNKNOWN INDICATION
     Route: 048
  14. SIROLIMUS [Concomitant]
     Indication: PROPHYLAXIS AGAINST TRANSPLANT REJECTION
     Route: 048

REACTIONS (5)
  - DRUG INEFFECTIVE [None]
  - GASTRIC VARICES HAEMORRHAGE [None]
  - HEPATIC STEATOSIS [None]
  - MUSCULOSKELETAL STIFFNESS [None]
  - PAIN [None]
